FAERS Safety Report 16431037 (Version 3)
Quarter: 2020Q4

REPORT INFORMATION
  Report Type: Report from Study
  Country: CO (occurrence: CO)
  Receive Date: 20190614
  Receipt Date: 20201029
  Transmission Date: 20210113
  Serious: Yes (Hospitalization, Other)
  Sender: FDA-Public Use
  Company Number: PHHY2019CO136568

PATIENT
  Age: 19 Year
  Sex: Female
  Weight: 43 kg

DRUGS (4)
  1. REVOLADE [Suspect]
     Active Substance: ELTROMBOPAG
     Indication: IMMUNE THROMBOCYTOPENIA
     Dosage: 25 MG, QD
     Route: 048
     Dates: start: 20180517
  2. REVOLADE [Suspect]
     Active Substance: ELTROMBOPAG
     Dosage: 50 MG, QD
     Route: 048
     Dates: start: 202003
  3. REVOLADE [Suspect]
     Active Substance: ELTROMBOPAG
     Dosage: 75 MG, QD
     Route: 048
  4. REVOLADE [Suspect]
     Active Substance: ELTROMBOPAG
     Dosage: 75 MG, QD
     Route: 048
     Dates: start: 201803

REACTIONS (17)
  - Petechiae [Recovered/Resolved]
  - Abdominal pain [Unknown]
  - Migraine [Recovered/Resolved]
  - Epistaxis [Recovered/Resolved]
  - Haemoglobin decreased [Unknown]
  - Contusion [Recovered/Resolved]
  - Menorrhagia [Recovered/Resolved]
  - Dizziness [Recovered/Resolved]
  - Vomiting [Unknown]
  - Platelet count decreased [Unknown]
  - Platelet count decreased [Recovered/Resolved]
  - Gingival bleeding [Recovered/Resolved]
  - Pelvic pain [Unknown]
  - Ovarian haemorrhage [Unknown]
  - Pain [Unknown]
  - Ovarian cyst [Unknown]
  - Transfusion-related acute lung injury [Unknown]

NARRATIVE: CASE EVENT DATE: 202005
